FAERS Safety Report 9410951 (Version 3)
Quarter: 2014Q1

REPORT INFORMATION
  Report Type: Report from Study
  Country: AU (occurrence: AU)
  Receive Date: 20130719
  Receipt Date: 20140122
  Transmission Date: 20141002
  Serious: Yes (Hospitalization)
  Sender: FDA-Public Use
  Company Number: AU-ASTRAZENECA-2013SE53700

PATIENT
  Age: 27694 Day
  Sex: Female

DRUGS (19)
  1. AZD6140 [Suspect]
     Indication: CORONARY ARTERY DISEASE
     Route: 048
     Dates: start: 20111031, end: 20130226
  2. AZD6140 [Suspect]
     Indication: CORONARY ARTERY DISEASE
     Route: 048
     Dates: start: 20130312, end: 20130703
  3. AZD6140 [Suspect]
     Indication: CORONARY ARTERY DISEASE
     Route: 048
     Dates: end: 20131231
  4. ASPIRIN [Suspect]
     Route: 048
     Dates: start: 20100123
  5. GLYCERYL TRINITRATE [Concomitant]
     Indication: MYOCARDIAL ISCHAEMIA
     Route: 060
  6. CODEINE PHOSPHATE [Concomitant]
     Indication: OSTEOARTHRITIS
     Route: 048
  7. DIAZEPAM [Concomitant]
     Indication: INSOMNIA
     Route: 048
  8. PANADOL OSTEO [Concomitant]
     Indication: OSTEOARTHRITIS
     Route: 048
     Dates: start: 20120306
  9. DOXYLAMINE SUCCIATE [Concomitant]
     Indication: INSOMNIA
     Route: 048
  10. ROSUVASTATIN [Concomitant]
     Indication: LIPID METABOLISM DISORDER
     Route: 048
  11. RAMIPRIL [Concomitant]
     Indication: MYOCARDIAL ISCHAEMIA
     Route: 048
  12. FLEXIL [Concomitant]
     Indication: OSTEOARTHRITIS
     Route: 061
     Dates: start: 20120306
  13. FOSAMAX [Concomitant]
     Indication: OSTEOPOROSIS
     Route: 048
  14. FERROUS F [Concomitant]
     Indication: GASTROINTESTINAL HAEMORRHAGE
     Route: 048
     Dates: start: 20130212, end: 20130316
  15. DILTIAZEM [Concomitant]
     Indication: MYOCARDIAL ISCHAEMIA
     Route: 048
  16. CLEXANE [Concomitant]
     Indication: THROMBOSIS PROPHYLAXIS
     Route: 058
     Dates: start: 20130707, end: 20130909
  17. PARACETAMOL [Concomitant]
     Indication: PAIN
     Route: 048
  18. CODEINE [Concomitant]
     Indication: PAIN
     Route: 048
  19. DOXYLAMINE SUCCINATE [Concomitant]
     Indication: PAIN
     Route: 048

REACTIONS (1)
  - Anaemia [Recovered/Resolved]
